FAERS Safety Report 5600247-2 (Version None)
Quarter: 2007Q4

REPORT INFORMATION
  Report Type: 
  Country: None (occurrence: None)
  Receive Date: 20071226
  Receipt Date: 20070323
  Transmission Date: 20080405
  Serious: Yes (Hospitalization)
  Sender: FDA-Public Use
  Company Number: 236757

PATIENT
  Age: 41 Year
  Sex: Female
  Weight: 58 kg

DRUGS (2)
  1. RAPTIVA [Suspect]
     Indication: PSORIASIS
     Dosage: 60 ML, 1/WEEK
     Dates: start: 20060427, end: 20070125
  2. TRIPHASIL-28 [Concomitant]

REACTIONS (1)
  - PLATELET COUNT DECREASED [None]
